FAERS Safety Report 13991140 (Version 1)
Quarter: 2017Q3

REPORT INFORMATION
  Report Type: Spontaneous
  Country: US (occurrence: US)
  Receive Date: 20170920
  Receipt Date: 20170920
  Transmission Date: 20171128
  Serious: No
  Sender: FDA-Public Use
  Company Number: None

PATIENT
  Age: 39 Year
  Sex: Female

DRUGS (1)
  1. OCRELIZUMAB. [Suspect]
     Active Substance: OCRELIZUMAB
     Indication: MULTIPLE SCLEROSIS
     Route: 041
     Dates: start: 20170829, end: 20170829

REACTIONS (4)
  - Pruritus [None]
  - Throat irritation [None]
  - Infusion related reaction [None]
  - Pharyngeal oedema [None]

NARRATIVE: CASE EVENT DATE: 20170829
